FAERS Safety Report 12153888 (Version 1)
Quarter: 2016Q1

REPORT INFORMATION
  Report Type: Spontaneous
  Country: US (occurrence: US)
  Receive Date: 20160307
  Receipt Date: 20160307
  Transmission Date: 20160526
  Serious: No
  Sender: FDA-Public Use
  Company Number: US-APOTEX-2015AP013187

PATIENT
  Sex: Female

DRUGS (2)
  1. AZELASTINE HYDROCHLORIDE NASAL SOLUTION (NASAL SPRAY) [Suspect]
     Active Substance: AZELASTINE HYDROCHLORIDE
     Indication: RHINITIS ALLERGIC
     Dosage: ONE SPRAY IN EACH NOSTRIL, TWICE DAILY
     Route: 045
     Dates: start: 201411, end: 20150812
  2. FLONASE [Concomitant]
     Active Substance: FLUTICASONE PROPIONATE
     Indication: PRODUCT USED FOR UNKNOWN INDICATION
     Dosage: UNK
     Route: 065

REACTIONS (1)
  - Migraine [Recovered/Resolved]

NARRATIVE: CASE EVENT DATE: 20150806
